FAERS Safety Report 7084853-7 (Version None)
Quarter: 2010Q4

REPORT INFORMATION
  Report Type: 
  Country: None (occurrence: None)
  Receive Date: 20101105
  Receipt Date: 20101028
  Transmission Date: 20110411
  Serious: No
  Sender: FDA-Public Use
  Company Number: US-BIOGENIDEC-2010BI038104

PATIENT
  Age: 47 Year
  Sex: Female

DRUGS (2)
  1. AVONEX [Suspect]
     Indication: MULTIPLE SCLEROSIS
     Route: 030
     Dates: start: 20100401, end: 20100501
  2. AVONEX [Suspect]
     Route: 030
     Dates: start: 20100501, end: 20100701

REACTIONS (3)
  - ABDOMINAL DISCOMFORT [None]
  - HEMIPARESIS [None]
  - INFLUENZA LIKE ILLNESS [None]
